FAERS Safety Report 25068151 (Version 1)
Quarter: 2025Q1

REPORT INFORMATION
  Report Type: Spontaneous
  Country: GB (occurrence: US)
  Receive Date: 20250312
  Receipt Date: 20250312
  Transmission Date: 20250409
  Serious: No
  Sender: PFIZER
  Company Number: GB-PFIZER INC-202500053152

PATIENT
  Age: 23 Year
  Sex: Female

DRUGS (1)
  1. LITFULO [Suspect]
     Active Substance: RITLECITINIB TOSYLATE
     Indication: Alopecia areata
     Dates: start: 202410

REACTIONS (2)
  - Heavy menstrual bleeding [Not Recovered/Not Resolved]
  - Menstrual clots [Not Recovered/Not Resolved]

NARRATIVE: CASE EVENT DATE: 20241001
